FAERS Safety Report 8456748-5 (Version None)
Quarter: 2012Q2

REPORT INFORMATION
  Report Type: 
  Country: None (occurrence: None)
  Receive Date: 20120621
  Receipt Date: 20120618
  Transmission Date: 20120825
  Serious: Yes (Other)
  Sender: FDA-Public Use
  Company Number: GB-AMGEN-GBRSP2012036224

PATIENT
  Sex: Female

DRUGS (2)
  1. ENOXAPARIN SODIUM [Concomitant]
     Indication: OSTEOPOROSIS
     Dosage: UNK UNK, Q12MO
  2. PROLIA [Suspect]
     Indication: OSTEOPOROSIS POSTMENOPAUSAL

REACTIONS (2)
  - SUBARACHNOID HAEMORRHAGE [None]
  - ATRIAL FIBRILLATION [None]
